FAERS Safety Report 5179575-3 (Version None)
Quarter: 2006Q4

REPORT INFORMATION
  Report Type: 
  Country: None (occurrence: None)
  Receive Date: 20061219
  Receipt Date: 20061213
  Transmission Date: 20070319
  Serious: Yes (Other)
  Sender: FDA-Public Use
  Company Number: CA-ROXANE LABORATORIES, INC-2006-DE-06672GD

PATIENT
  Age: 13 Year
  Sex: Male
  Weight: 54 kg

DRUGS (10)
  1. MORPHINE [Suspect]
     Indication: PROCEDURAL PAIN
     Dosage: BOLUS OF 0.8 MG WITH A LOCKOUT OF 6 MIN
  2. MORPHINE [Suspect]
     Dosage: BOLUS OF 1.2 MG EVERY 6 MIN
  3. MORPHINE [Suspect]
     Dosage: 0.54 MG/H + BOLUS OF 1.2 MG EVERY 6 MIN
  4. ACETAMINOPHEN [Suspect]
     Indication: PROCEDURAL PAIN
     Route: 048
  5. KETAMINE HCL [Suspect]
     Indication: PROCEDURAL PAIN
     Dosage: BOLUS OF 0.8 MG WITH A LOCKOUT OF 6 MIN
     Route: 042
  6. KETAMINE HCL [Suspect]
     Dosage: BOLUS OF 1.2 MG EVERY 6 MIN
  7. KETAMINE HCL [Suspect]
     Dosage: 0.54 MG/H + BOLUS OF 1.2 MG EVERY 6 MIN
  8. KETOROLAC TROMETHAMINE [Suspect]
     Indication: PROCEDURAL PAIN
     Route: 042
  9. DIAZEPAM [Suspect]
     Indication: PAIN
     Dosage: 5 MG EVERY 12 H; RECEIVED IN TOTAL 3 DOSES DURING 6 DAYS
     Route: 048
  10. DIAZEPAM [Suspect]
     Indication: MUSCLE SPASMS

REACTIONS (5)
  - DRUG INEFFECTIVE [None]
  - INSOMNIA [None]
  - PAIN [None]
  - PRURITUS [None]
  - SEDATION [None]
